FAERS Safety Report 6538962-9 (Version None)
Quarter: 2010Q1

REPORT INFORMATION
  Report Type: 
  Country: None (occurrence: None)
  Receive Date: 20100115
  Receipt Date: 20100112
  Transmission Date: 20100710
  Serious: Yes (Death, Hospitalization, Disabling)
  Sender: FDA-Public Use
  Company Number: GB-TEVA-163236ISR

PATIENT
  Age: 72 Year
  Sex: Female

DRUGS (4)
  1. MIRTAZAPINE [Suspect]
     Indication: AGITATION
     Route: 048
     Dates: start: 20070907
  2. MIRTAZAPINE [Suspect]
     Indication: DEPRESSION
  3. RISPERIDONE [Suspect]
     Indication: AGITATION
     Route: 048
     Dates: start: 20070907
  4. RISPERIDONE [Suspect]
     Indication: DEPRESSION

REACTIONS (1)
  - CEREBROVASCULAR ACCIDENT [None]
